FAERS Safety Report 8050508-5 (Version None)
Quarter: 2012Q1

REPORT INFORMATION
  Report Type: 
  Country: None (occurrence: None)
  Receive Date: 20120117
  Receipt Date: 20120104
  Transmission Date: 20120608
  Serious: Yes (Other)
  Sender: FDA-Public Use
  Company Number: US-ASTRAZENECA-2012SE00934

PATIENT
  Age: 52 Year
  Sex: Female
  Weight: 67.1 kg

DRUGS (5)
  1. DOBUPROPINE [Concomitant]
  2. TEMACIPINE [Concomitant]
  3. SEROQUEL [Suspect]
     Indication: BIPOLAR I DISORDER
     Route: 048
  4. SEROQUEL [Suspect]
     Route: 048
  5. CYMBALTA [Concomitant]

REACTIONS (7)
  - DEPRESSION [None]
  - SUICIDAL IDEATION [None]
  - WEIGHT DECREASED [None]
  - CRYING [None]
  - DECREASED APPETITE [None]
  - DRUG DOSE OMISSION [None]
  - INSOMNIA [None]
